FAERS Safety Report 9071371 (Version 1)
Quarter: 2013Q1

REPORT INFORMATION
  Report Type: Spontaneous
  Country: US (occurrence: US)
  Receive Date: 20130129
  Receipt Date: 20130129
  Transmission Date: 20140127
  Serious: No
  Sender: FDA-Public Use
  Company Number: US-B.I. PHARMACEUTICALS,INC./RIDGEFIELD-2013-BI-01183BP

PATIENT
  Age: 66 None
  Sex: Female
  Weight: 77 kg

DRUGS (1)
  1. AGGRENOX [Suspect]
     Indication: PLATELET COUNT INCREASED
     Route: 048
     Dates: start: 20130113, end: 20130113

REACTIONS (2)
  - Headache [Recovered/Resolved]
  - Feeling hot [Recovered/Resolved]
